FAERS Safety Report 23911534 (Version 1)
Quarter: 2024Q2

REPORT INFORMATION
  Report Type: Spontaneous
  Country: US (occurrence: None)
  Receive Date: 20240528
  Receipt Date: 20240528
  Transmission Date: 20240716
  Serious: Yes (Hospitalization)
  Sender: FDA-Public Use
  Company Number: None

PATIENT
  Age: 75 Year
  Sex: Female

DRUGS (11)
  1. VELTASSA [Suspect]
     Active Substance: PATIROMER
     Indication: Hyperkalaemia
     Dosage: FREQ: DISSOLVE CONTENTS OF 1 PACKET INTO 1/3 CUP OF WATER AND DRINK FULL AMOUNT ONCE DAILY AS DIRECT
     Route: 048
     Dates: start: 20161129
  2. BENTYL [Concomitant]
     Active Substance: DICYCLOMINE HYDROCHLORIDE
  3. CLONIDINE [Concomitant]
     Active Substance: CLONIDINE
  4. COLCHICINE POW [Concomitant]
  5. FISH OIL [Concomitant]
     Active Substance: FISH OIL
  6. HUMIRA [Concomitant]
     Active Substance: ADALIMUMAB
  7. JANUVIA [Concomitant]
     Active Substance: SITAGLIPTIN PHOSPHATE
  8. LINZESS [Concomitant]
     Active Substance: LINACLOTIDE
  9. METAMUCIL [Concomitant]
     Active Substance: PLANTAGO SEED
  10. METFORMIN [Concomitant]
     Active Substance: METFORMIN HYDROCHLORIDE
  11. METHOTREXATE [Concomitant]
     Active Substance: METHOTREXATE

REACTIONS (1)
  - Hospitalisation [None]

NARRATIVE: CASE EVENT DATE: 20240510
